FAERS Safety Report 24300198 (Version 3)
Quarter: 2025Q2

REPORT INFORMATION
  Report Type: Report from Study
  Country: CA (occurrence: CA)
  Receive Date: 20240909
  Receipt Date: 20250403
  Transmission Date: 20250716
  Serious: Yes (Life-Threatening, Hospitalization)
  Sender: RIGEL PHARMACEUTICALS
  Company Number: CA-RIGEL Pharmaceuticals, INC-20240900025

PATIENT
  Age: 80 Year
  Sex: Male

DRUGS (4)
  1. FOSTAMATINIB DISODIUM [Suspect]
     Active Substance: FOSTAMATINIB DISODIUM
     Indication: Immune thrombocytopenia
     Dosage: 150 MG, BID
     Route: 048
     Dates: start: 20240607, end: 20250226
  2. TRANEXAMIC ACID [Concomitant]
     Active Substance: TRANEXAMIC ACID
     Indication: Product used for unknown indication
     Dosage: 1.5 G, TID
  3. AVATROMBOPAG [Concomitant]
     Active Substance: AVATROMBOPAG
     Indication: Product used for unknown indication
  4. PREDNISONE [Concomitant]
     Active Substance: PREDNISONE
     Indication: Product used for unknown indication

REACTIONS (8)
  - Intestinal perforation [Unknown]
  - Immune thrombocytopenia [Unknown]
  - Purpura [Unknown]
  - Platelet count [Unknown]
  - Haematoma [Unknown]
  - Surgery [Unknown]
  - Platelet count increased [Not Recovered/Not Resolved]
  - Drug ineffective [Unknown]

NARRATIVE: CASE EVENT DATE: 20240801
